FAERS Safety Report 24443509 (Version 2)
Quarter: 2024Q4

REPORT INFORMATION
  Report Type: Report from Study
  Country: US (occurrence: US)
  Receive Date: 20241016
  Receipt Date: 20241017
  Transmission Date: 20250115
  Serious: No
  Sender: ROCHE
  Company Number: US-ROCHE-1979971

PATIENT
  Age: 60 Year
  Sex: Female

DRUGS (3)
  1. RITUXAN [Suspect]
     Active Substance: RITUXIMAB
     Indication: Multiple sclerosis
     Route: 042
  2. RITUXAN [Suspect]
     Active Substance: RITUXIMAB
     Route: 042
     Dates: start: 20170131
  3. RITUXAN [Suspect]
     Active Substance: RITUXIMAB
     Dosage: NEXT DATE OF TREATMENT: 17/JAN/2018.?DATE OF TREATMENT 11/MAY/2018
     Route: 042
     Dates: start: 20170818

REACTIONS (2)
  - Off label use [Unknown]
  - No adverse event [Unknown]
